FAERS Safety Report 7347386-6 (Version None)
Quarter: 2011Q1

REPORT INFORMATION
  Report Type: 
  Country: None (occurrence: None)
  Receive Date: 20110311
  Receipt Date: 20110207
  Transmission Date: 20110831
  Serious: Yes (Other)
  Sender: FDA-Public Use
  Company Number: FR-GENENTECH-314598

PATIENT
  Age: 59 Year
  Sex: Female
  Weight: 59 kg

DRUGS (7)
  1. BENDAMUSTINE [Suspect]
     Indication: B-CELL LYMPHOMA
     Dosage: 280 MG, 1/MONTH
     Route: 042
     Dates: start: 20100920, end: 20100921
  2. RITUXIMAB [Suspect]
     Dosage: UNK UNK, 1/MONTH
     Route: 042
     Dates: start: 20101013, end: 20101013
  3. REVLIMID [Suspect]
     Dosage: 15 MG, QAM
     Route: 048
     Dates: start: 20101015, end: 20101117
  4. REVLIMID [Suspect]
     Indication: B-CELL LYMPHOMA
     Dosage: 30 MG, BID
     Route: 048
     Dates: start: 20100921, end: 20101014
  5. RITUXIMAB [Suspect]
     Dosage: 19.3333 MG, 1/MONTH
     Route: 042
     Dates: start: 20101112, end: 20101112
  6. RITUXIMAB [Suspect]
     Indication: B-CELL LYMPHOMA
     Dosage: 580 MG, 1/MONTH
     Route: 042
     Dates: start: 20100920, end: 20100920
  7. BENDAMUSTINE [Suspect]
     Dosage: UNK UNK, 1/MONTH
     Route: 042
     Dates: start: 20101013, end: 20101014

REACTIONS (1)
  - FEBRILE BONE MARROW APLASIA [None]
